FAERS Safety Report 15687186 (Version 1)
Quarter: 2018Q4

REPORT INFORMATION
  Report Type: Spontaneous
  Country: JP (occurrence: JP)
  Receive Date: 20181204
  Receipt Date: 20181204
  Transmission Date: 20190205
  Serious: Yes (Other)
  Sender: FDA-Public Use
  Company Number: PHJP2018JP020173

PATIENT
  Age: 1 Year
  Sex: Male

DRUGS (1)
  1. NELARABINE [Suspect]
     Active Substance: NELARABINE
     Indication: PRECURSOR T-LYMPHOBLASTIC LYMPHOMA/LEUKAEMIA STAGE I
     Dosage: UNK
     Route: 041

REACTIONS (3)
  - Pulmonary arterial hypertension [Recovered/Resolved]
  - Pulmonary arterial hypertension [Unknown]
  - Dyspnoea [Unknown]
